FAERS Safety Report 15809002 (Version 1)
Quarter: 2019Q1

REPORT INFORMATION
  Report Type: Spontaneous
  Country: US (occurrence: US)
  Receive Date: 20190110
  Receipt Date: 20190110
  Transmission Date: 20190417
  Serious: Yes (Hospitalization)
  Sender: FDA-Public Use
  Company Number: US-OTSUKA-2018_026442

PATIENT

DRUGS (1)
  1. ABILIFY [Suspect]
     Active Substance: ARIPIPRAZOLE
     Indication: PRODUCT USED FOR UNKNOWN INDICATION
     Dosage: UNK
     Route: 065
     Dates: start: 20110220, end: 20130325

REACTIONS (8)
  - Economic problem [Unknown]
  - Dyskinesia [Unknown]
  - Gambling disorder [Recovered/Resolved]
  - Bruxism [Unknown]
  - Mental disorder [Unknown]
  - Loss of employment [Unknown]
  - Condition aggravated [Recovered/Resolved]
  - Obsessive-compulsive disorder [Unknown]

NARRATIVE: CASE EVENT DATE: 2011
